FAERS Safety Report 7543576-8 (Version None)
Quarter: 2011Q2

REPORT INFORMATION
  Report Type: 
  Country: None (occurrence: None)
  Receive Date: 20110613
  Receipt Date: 20020823
  Transmission Date: 20111010
  Serious: Yes (Death)
  Sender: FDA-Public Use
  Company Number: PHFR2002GB02408

PATIENT
  Sex: Male

DRUGS (5)
  1. CHLORPROMAZINE [Concomitant]
     Dosage: 50 MG, BID
     Route: 048
  2. CLOZAPINE [Suspect]
     Indication: SCHIZOPHRENIA
     Dosage: UNK, UNK
     Route: 048
     Dates: start: 20020702
  3. PAROXETINE HYDROCHLORIDE [Concomitant]
     Dosage: 20 MG, MANE
     Route: 048
  4. BENZHEXOL [Concomitant]
     Dosage: 5 MG, BID
     Route: 048
  5. INDAPAMIDE [Concomitant]
     Dosage: 2.5 MG, MANE
     Route: 048

REACTIONS (10)
  - HYPOTENSION [None]
  - CIRCULATORY COLLAPSE [None]
  - TACHYCARDIA [None]
  - BLOOD THYROID STIMULATING HORMONE INCREASED [None]
  - DYSPNOEA [None]
  - PALLOR [None]
  - PNEUMONIA [None]
  - CHEST PAIN [None]
  - CREPITATIONS [None]
  - BLOOD UREA INCREASED [None]
